FAERS Safety Report 5636153-7 (Version None)
Quarter: 2008Q1

REPORT INFORMATION
  Report Type: 
  Country: None (occurrence: None)
  Receive Date: 20080220
  Receipt Date: 20080213
  Transmission Date: 20080703
  Serious: Yes (Death, Hospitalization)
  Sender: FDA-Public Use
  Company Number: 044-C5013-07080964

PATIENT
  Age: 74 Year
  Sex: Male
  Weight: 84 kg

DRUGS (9)
  1. CC-5013 (LENALIDOMIDE) (CAPSULES) [Suspect]
     Indication: MULTIPLE MYELOMA
     Dosage: 25 MG, DAILY, ORAL; 15 MG, DAILY, ORAL
     Route: 048
     Dates: start: 20070803, end: 20070816
  2. CC-5013 (LENALIDOMIDE) (CAPSULES) [Suspect]
     Indication: MULTIPLE MYELOMA
     Dosage: 25 MG, DAILY, ORAL; 15 MG, DAILY, ORAL
     Route: 048
     Dates: start: 20070912, end: 20071001
  3. DEXAMETHASONE TAB [Concomitant]
  4. ZOLEDRONIC ACID [Concomitant]
  5. GABAPENTIN [Concomitant]
  6. ACETYLSALICYLIC ACID SRT [Concomitant]
  7. ZOLPIDEM [Concomitant]
  8. ACETAMINOPHEN [Concomitant]
  9. TRAMADOL HCL [Concomitant]

REACTIONS (5)
  - AZOTAEMIA [None]
  - HAEMOGLOBIN DECREASED [None]
  - NEUTROPENIA [None]
  - PERIANAL ABSCESS [None]
  - PLATELET COUNT DECREASED [None]
